FAERS Safety Report 12072866 (Version 1)
Quarter: 2016Q1

REPORT INFORMATION
  Report Type: Spontaneous
  Country: US (occurrence: US)
  Receive Date: 20160212
  Receipt Date: 20160212
  Transmission Date: 20160526
  Serious: No
  Sender: FDA-Public Use
  Company Number: US-PFIZER INC-2016078653

PATIENT
  Age: 48 Year
  Sex: Male
  Weight: 109.7 kg

DRUGS (2)
  1. NEURONTIN [Suspect]
     Active Substance: GABAPENTIN
     Indication: DIABETIC NEUROPATHY
  2. NEURONTIN [Suspect]
     Active Substance: GABAPENTIN
     Indication: RHEUMATOID ARTHRITIS
     Dosage: 800 MG, 3X/DAY
     Dates: start: 2005

REACTIONS (1)
  - Drug ineffective for unapproved indication [Unknown]
